FAERS Safety Report 7050394-6 (Version None)
Quarter: 2010Q4

REPORT INFORMATION
  Report Type: 
  Country: None (occurrence: None)
  Receive Date: 20101013
  Receipt Date: 20100927
  Transmission Date: 20110411
  Serious: Yes (Life-Threatening)
  Sender: FDA-Public Use
  Company Number: 011291

PATIENT
  Age: 7 Year
  Sex: Male

DRUGS (5)
  1. BUSULFEX [Suspect]
     Indication: MYELODYSPLASTIC SYNDROME
     Dosage: INTRAVENOUS
     Route: 042
     Dates: start: 20100503, end: 20100507
  2. ENDOXAN NET (CYCLOPHOSPHAMIDE) [Concomitant]
  3. CYCLOSPORINE [Concomitant]
  4. METHOTREXATE SODIUM [Concomitant]
  5. THYMOGLOBULIN [Concomitant]

REACTIONS (17)
  - ACUTE GRAFT VERSUS HOST DISEASE IN INTESTINE [None]
  - ASCITES [None]
  - CYTOLYTIC HEPATITIS [None]
  - DISSEMINATED INTRAVASCULAR COAGULATION [None]
  - ELECTROENCEPHALOGRAM ABNORMAL [None]
  - GASTROINTESTINAL HAEMORRHAGE [None]
  - HAEMATURIA [None]
  - HAEMOLYSIS [None]
  - HAPTOGLOBIN DECREASED [None]
  - HYPOTENSION [None]
  - PYREXIA [None]
  - RED BLOOD CELL SCHISTOCYTES PRESENT [None]
  - SOMNOLENCE [None]
  - TACHYCARDIA [None]
  - THROMBOCYTOPENIA [None]
  - THROMBOTIC MICROANGIOPATHY [None]
  - VENOOCCLUSIVE DISEASE [None]
